FAERS Safety Report 14610176 (Version 2)
Quarter: 2018Q1

REPORT INFORMATION
  Report Type: Spontaneous
  Country: GB (occurrence: FR)
  Receive Date: 20180307
  Receipt Date: 20180313
  Transmission Date: 20180509
  Serious: Yes (Hospitalization, Other)
  Sender: FDA-Public Use
  Company Number: FR-FRESENIUS KABI-FK201802472

PATIENT
  Age: 34 Year
  Sex: Female
  Weight: 54 kg

DRUGS (15)
  1. SMOFLIPID [Suspect]
     Active Substance: FISH OIL\MEDIUM-CHAIN TRIGLYCERIDES\OLIVE OIL\SOYBEAN OIL
     Indication: PARENTERAL NUTRITION
  2. SELENIUM [Suspect]
     Active Substance: SELENIUM
     Indication: MALNUTRITION
     Route: 042
  3. VITAMIN K1 [Suspect]
     Active Substance: PHYTONADIONE
     Indication: MALNUTRITION
     Route: 042
  4. VIT E EPHYNAL [Suspect]
     Active Substance: .ALPHA.-TOCOPHEROL ACETATE
     Indication: MALNUTRITION
     Route: 042
  5. CERNEVIT [Suspect]
     Active Substance: VITAMINS
     Indication: MALNUTRITION
     Route: 042
  6. NUTRYELT [Suspect]
     Active Substance: IRON\MINERALS\POTASSIUM IOD\SODIUM FLUORIDE\SODIUM MOLYBDATE\SODIUM SELENITE\ZINC
     Indication: PARENTERAL NUTRITION
     Route: 042
  7. PHOCYTAN [Suspect]
     Active Substance: .ALPHA.-GLUCOSE-1-PHOSPHATE
     Indication: MALNUTRITION
     Route: 042
  8. ZINC. [Suspect]
     Active Substance: ZINC
     Indication: MALNUTRITION
     Route: 042
  9. MAGNESIUM SULPHATE [Suspect]
     Active Substance: MAGNESIUM SULFATE
     Indication: MALNUTRITION
     Route: 042
  10. POTASSIUM CHLORIDE. [Suspect]
     Active Substance: POTASSIUM CHLORIDE
     Indication: MALNUTRITION
     Route: 042
  11. VINTENE [Suspect]
     Active Substance: AMINO ACIDS
     Indication: MALNUTRITION
     Route: 042
  12. SMOFLIPID [Suspect]
     Active Substance: FISH OIL\MEDIUM-CHAIN TRIGLYCERIDES\OLIVE OIL\SOYBEAN OIL
     Indication: MALNUTRITION
     Route: 042
  13. SODIUM CHLORIDE. [Suspect]
     Active Substance: SODIUM CHLORIDE
     Indication: MALNUTRITION
     Route: 042
  14. GLUCOSE [Suspect]
     Active Substance: DEXTROSE
     Indication: MALNUTRITION
     Route: 042
  15. CALCIUM GLUCONATE. [Suspect]
     Active Substance: CALCIUM GLUCONATE
     Indication: MALNUTRITION
     Route: 042

REACTIONS (4)
  - Enterobacter infection [Recovered/Resolved]
  - Pyrexia [Recovered/Resolved]
  - Device related infection [Recovered/Resolved]
  - Exposure during pregnancy [Recovered/Resolved]

NARRATIVE: CASE EVENT DATE: 20170404
